FAERS Safety Report 4541014-0 (Version None)
Quarter: 2004Q4

REPORT INFORMATION
  Report Type: 
  Country: None (occurrence: None)
  Receive Date: 20041228
  Receipt Date: 20041207
  Transmission Date: 20050328
  Serious: Yes (Other)
  Sender: FDA-Public Use
  Company Number: CA_041207530

PATIENT
  Age: 12 Year
  Sex: Male
  Weight: 84 kg

DRUGS (1)
  1. ATOMOXETINE HYDROCHLORIDE [Suspect]
     Indication: ATTENTION DEFICIT/HYPERACTIVITY DISORDER
     Dosage: 80 MG DAY
     Dates: start: 20040316, end: 20041203

REACTIONS (3)
  - HEPATITIS [None]
  - INFLUENZA LIKE ILLNESS [None]
  - VIRAL INFECTION [None]
